FAERS Safety Report 4906043-3 (Version None)
Quarter: 2006Q1

REPORT INFORMATION
  Report Type: 
  Country: None (occurrence: None)
  Receive Date: 20060207
  Receipt Date: 20060207
  Transmission Date: 20060701
  Serious: Yes (Hospitalization)
  Sender: FDA-Public Use
  Company Number: None

PATIENT
  Age: 40 Year
  Sex: Male
  Weight: 35.3806 kg

DRUGS (1)
  1. CO-TRIMAZOLE 800 MG/160 MG GENERIC [Suspect]
     Indication: CANDIDIASIS
     Dosage: 1 TABLET MON, WED; AND FRI PO
     Route: 048
     Dates: start: 20050222, end: 20050311

REACTIONS (10)
  - DRUG HYPERSENSITIVITY [None]
  - EOSINOPHILIA [None]
  - FLUSHING [None]
  - HEPATITIS [None]
  - HYPOTENSION [None]
  - PANCYTOPENIA [None]
  - PYREXIA [None]
  - RASH [None]
  - SEPSIS [None]
  - SHOCK [None]
